FAERS Safety Report 19780085 (Version 1)
Quarter: 2021Q3

REPORT INFORMATION
  Report Type: Spontaneous
  Country: EG (occurrence: EG)
  Receive Date: 20210902
  Receipt Date: 20210902
  Transmission Date: 20211014
  Serious: Yes (Congenital Anomaly, Other)
  Sender: FDA-Public Use
  Company Number: EG-UCBSA-2021041587

PATIENT

DRUGS (2)
  1. CARBAMAZEPINE. [Suspect]
     Active Substance: CARBAMAZEPINE
     Indication: EPILEPSY
     Dosage: 400?1000 MILLIGRAMS
     Route: 064
  2. KEPPRA [Suspect]
     Active Substance: LEVETIRACETAM
     Indication: EPILEPSY
     Dosage: 1000?2000 MILLIGRAMS
     Route: 064

REACTIONS (2)
  - Hypospadias [Unknown]
  - Maternal exposure before pregnancy [Unknown]
